FAERS Safety Report 8216456-2 (Version None)
Quarter: 2012Q1

REPORT INFORMATION
  Report Type: 
  Country: None (occurrence: None)
  Receive Date: 20120316
  Receipt Date: 20120309
  Transmission Date: 20120608
  Serious: Yes (Death, Life-Threatening, Other)
  Sender: FDA-Public Use
  Company Number: JP-CELGENEUS-087-50794-12011876

PATIENT
  Sex: Female

DRUGS (41)
  1. VIDAZA [Suspect]
     Dosage: 100 MILLIGRAM
     Route: 058
     Dates: start: 20111220, end: 20111226
  2. KYTRIL [Concomitant]
     Route: 065
     Dates: start: 20111118, end: 20111124
  3. KYTRIL [Concomitant]
     Route: 065
     Dates: start: 20111220, end: 20111226
  4. CEFEPIME DIHYDROCHLORIDE HYDRATE [Concomitant]
     Route: 065
     Dates: start: 20111210, end: 20111222
  5. VANCOMYCIN HYDROCHLORIDE [Concomitant]
     Route: 065
     Dates: start: 20120104, end: 20120104
  6. TEICOPLANIN [Concomitant]
     Route: 065
     Dates: start: 20120108, end: 20120110
  7. VIDAZA [Suspect]
     Route: 065
     Dates: start: 20111118, end: 20111124
  8. ASPIRIN [Concomitant]
     Route: 065
     Dates: end: 20120111
  9. SEDEKOPAN [Concomitant]
     Route: 065
     Dates: end: 20120111
  10. KYTRIL [Concomitant]
     Route: 065
     Dates: start: 20111019, end: 20111025
  11. VANCOMYCIN HYDROCHLORIDE [Concomitant]
     Route: 065
     Dates: start: 20111226, end: 20111226
  12. VANCOMYCIN HYDROCHLORIDE [Concomitant]
     Route: 065
     Dates: start: 20111231, end: 20111231
  13. EPOGIN [Concomitant]
     Route: 050
     Dates: start: 20120105, end: 20120105
  14. LIPITOR [Concomitant]
     Route: 065
     Dates: end: 20111029
  15. LASIX [Concomitant]
     Route: 065
     Dates: start: 20120105, end: 20120105
  16. CILOSTAZOL [Concomitant]
     Route: 065
     Dates: end: 20120111
  17. AMLODIPINE BESYLATE [Concomitant]
     Route: 065
     Dates: end: 20111227
  18. COTRIM [Concomitant]
     Route: 065
     Dates: start: 20111019
  19. CEFOCEF [Concomitant]
     Route: 065
     Dates: start: 20111226, end: 20111227
  20. PENTAZOCINE LACTATE [Concomitant]
     Route: 065
     Dates: start: 20120103, end: 20120103
  21. EPOGIN [Concomitant]
     Route: 050
     Dates: start: 20120111, end: 20120111
  22. VIDAZA [Suspect]
     Indication: MYELODYSPLASTIC SYNDROME
     Route: 065
     Dates: start: 20111019, end: 20111025
  23. GAMOFA [Concomitant]
     Route: 065
  24. SELBEX [Concomitant]
     Route: 065
     Dates: end: 20120111
  25. LASIX [Concomitant]
     Route: 065
     Dates: start: 20120112, end: 20120112
  26. ARGAMATE [Concomitant]
     Route: 065
     Dates: start: 20111218, end: 20111220
  27. CARVEDILOL [Concomitant]
     Route: 065
     Dates: end: 20111227
  28. ALLOPURINOL [Concomitant]
     Route: 065
     Dates: start: 20111019, end: 20111027
  29. SENNARIDE [Concomitant]
     Route: 065
     Dates: start: 20111022
  30. MAGMITT [Concomitant]
     Route: 065
     Dates: start: 20111030, end: 20111226
  31. ALBUMIN TANNATE [Concomitant]
     Route: 065
     Dates: start: 20111102, end: 20111104
  32. VANCOMYCIN HYDROCHLORIDE [Concomitant]
     Route: 065
     Dates: start: 20111228, end: 20111228
  33. TEICOPLANIN [Concomitant]
     Route: 065
     Dates: start: 20120105, end: 20120107
  34. NONTHRON [Concomitant]
     Route: 065
     Dates: start: 20120105
  35. LANSOPRAZOLE [Concomitant]
     Route: 065
     Dates: start: 20111030, end: 20120111
  36. MAXIPIME [Concomitant]
     Route: 065
     Dates: start: 20111207, end: 20111209
  37. CEFEPIME DIHYDROCHLORIDE HYDRATE [Concomitant]
     Route: 065
     Dates: start: 20111224, end: 20111225
  38. ZOSYN [Concomitant]
     Route: 065
     Dates: start: 20111227, end: 20120107
  39. LASIX [Concomitant]
     Route: 065
     Dates: start: 20120110, end: 20120110
  40. TANATRIL [Concomitant]
     Route: 065
     Dates: end: 20111227
  41. FLUCONAZON [Concomitant]
     Route: 065
     Dates: start: 20111019, end: 20111226

REACTIONS (14)
  - SEPTIC SHOCK [None]
  - SEPSIS [None]
  - HYPERURICAEMIA [None]
  - FEMUR FRACTURE [None]
  - THROMBOCYTOPENIA [None]
  - ANAEMIA [None]
  - SHOCK [None]
  - DISSEMINATED INTRAVASCULAR COAGULATION [None]
  - HYPERPHOSPHATAEMIA [None]
  - FEBRILE NEUTROPENIA [None]
  - RENAL FAILURE ACUTE [None]
  - DEHYDRATION [None]
  - HYPOCALCAEMIA [None]
  - NEUTROPHIL COUNT DECREASED [None]
